FAERS Safety Report 7432262-0 (Version None)
Quarter: 2011Q2

REPORT INFORMATION
  Report Type: 
  Country: None (occurrence: None)
  Receive Date: 20110415
  Receipt Date: 20110329
  Transmission Date: 20111010
  Serious: Yes (Other)
  Sender: FDA-Public Use
  Company Number: FK201100666

PATIENT
  Age: 15 Year
  Sex: Male

DRUGS (1)
  1. CEFEPIME [Suspect]
     Indication: SEPSIS

REACTIONS (1)
  - LUPUS-LIKE SYNDROME [None]
